FAERS Safety Report 5244062-0 (Version None)
Quarter: 2007Q1

REPORT INFORMATION
  Report Type: 
  Country: None (occurrence: None)
  Receive Date: 20070222
  Receipt Date: 20070207
  Transmission Date: 20070707
  Serious: Yes (Hospitalization, Other)
  Sender: FDA-Public Use
  Company Number: PHBS2007GB02511

PATIENT
  Age: 75 Year
  Sex: Male

DRUGS (3)
  1. ENTACAPONE [Suspect]
     Indication: PARKINSON'S DISEASE
     Dosage: 200 MG, 5QD
  2. GABAPENTIN [Suspect]
     Indication: NEURALGIA
     Dosage: 200 MG, TID
  3. CARBIDOPA AND LEVODOPA [Concomitant]
     Indication: PARKINSON'S DISEASE
     Dosage: 100/25 MG X5/DAY

REACTIONS (4)
  - HALLUCINATION [None]
  - LUMBAR SPINAL STENOSIS [None]
  - NEURALGIA [None]
  - SPINAL OPERATION [None]
